FAERS Safety Report 5280482-6 (Version None)
Quarter: 2007Q1

REPORT INFORMATION
  Report Type: 
  Country: None (occurrence: None)
  Receive Date: 20061229
  Receipt Date: 20060821
  Transmission Date: 20070707
  Serious: Yes (Other)
  Sender: FDA-Public Use
  Company Number: 2006UW16592

PATIENT
  Age: 64 Year
  Sex: Female
  Weight: 68.038 kg

DRUGS (9)
  1. CRESTOR [Suspect]
     Indication: BLOOD CHOLESTEROL INCREASED
     Dosage: 5 MG PO
     Route: 048
     Dates: start: 20060817
  2. LISINOPRIL [Concomitant]
  3. CYCLOBENZAPRINE HCL [Concomitant]
  4. AMITRIPTYLINE HCL [Concomitant]
  5. COZAAR [Concomitant]
  6. TRAMADOL HCL [Concomitant]
  7. CODEINE [Concomitant]
  8. HYRROXAPAN [Concomitant]
  9. DOCUSATE SODIUM [Concomitant]

REACTIONS (1)
  - ODYNOPHAGIA [None]
